FAERS Safety Report 10687373 (Version 2)
Quarter: 2015Q1

REPORT INFORMATION
  Report Type: Spontaneous
  Country: FR (occurrence: FR)
  Receive Date: 20150102
  Receipt Date: 20150202
  Transmission Date: 20150720
  Serious: Yes (Hospitalization)
  Sender: FDA-Public Use
  Company Number: FR-SA-2014SA178138

PATIENT
  Age: 69 Year
  Sex: Male

DRUGS (7)
  1. PANTOPRAZOLE [Suspect]
     Active Substance: PANTOPRAZOLE SODIUM
     Route: 048
     Dates: end: 2014
  2. ESOMEPRAZOLE [Suspect]
     Active Substance: ESOMEPRAZOLE
     Route: 065
     Dates: start: 2014
  3. AMLOR [Suspect]
     Active Substance: AMLODIPINE BESYLATE
     Route: 048
  4. ATENOLOL. [Suspect]
     Active Substance: ATENOLOL
     Route: 048
  5. OMIX [Suspect]
     Active Substance: TAMSULOSIN HYDROCHLORIDE
     Dosage: 0.4 MG, PROLONGED RELEASE MICROGRANULES IN CAPSULE
     Route: 048
  6. PLAVIX [Suspect]
     Active Substance: CLOPIDOGREL BISULFATE
     Route: 048
  7. ELISOR [Suspect]
     Active Substance: PRAVASTATIN SODIUM
     Route: 048

REACTIONS (1)
  - Hyponatraemia [Recovered/Resolved]

NARRATIVE: CASE EVENT DATE: 201305
